FAERS Safety Report 8454024-8 (Version None)
Quarter: 2012Q2

REPORT INFORMATION
  Report Type: 
  Country: None (occurrence: None)
  Receive Date: 20120620
  Receipt Date: 20120611
  Transmission Date: 20120825
  Serious: No
  Sender: FDA-Public Use
  Company Number: US-ASTRAZENECA-2012SE38845

PATIENT
  Age: 68 Year
  Sex: Male
  Weight: 74.8 kg

DRUGS (2)
  1. ASPIRIN [Concomitant]
  2. CRESTOR [Suspect]
     Indication: BLOOD CHOLESTEROL
     Route: 048

REACTIONS (1)
  - DRY MOUTH [None]
